FAERS Safety Report 4453457-4 (Version None)
Quarter: 2004Q3

REPORT INFORMATION
  Report Type: 
  Country: None (occurrence: None)
  Receive Date: 20040920
  Receipt Date: 20040908
  Transmission Date: 20050211
  Serious: Yes (Death)
  Sender: FDA-Public Use
  Company Number: JP-JNJFOC-20031201132

PATIENT
  Sex: Female

DRUGS (14)
  1. FENTANYL [Suspect]
     Route: 062
     Dates: start: 20030922, end: 20031104
  2. FENTANYL [Suspect]
     Indication: CANCER PAIN
     Route: 062
     Dates: start: 20030922, end: 20031104
  3. MORPHINE HYDROCHLORIDE [Concomitant]
     Indication: CANCER PAIN
     Dosage: 10 - 50 MG/DAY
     Route: 049
     Dates: start: 20030922
  4. SODIUM PICOSULFATE [Concomitant]
     Indication: CONSTIPATION
     Route: 049
     Dates: start: 20030922
  5. MAGNESIUM OXIDE [Concomitant]
     Indication: CONSTIPATION
     Route: 049
     Dates: start: 20030922, end: 20031002
  6. BROTIZOLAM [Concomitant]
     Route: 049
     Dates: start: 20030922, end: 20031030
  7. PANTETHINE [Concomitant]
     Route: 049
     Dates: start: 20030922, end: 20031005
  8. PREDNISOLONE [Concomitant]
     Indication: OEDEMA
     Route: 049
     Dates: start: 20030922, end: 20031005
  9. CIMETIDINE [Concomitant]
     Indication: PEPTIC ULCER
     Route: 049
     Dates: start: 20030922, end: 20031005
  10. DIGESTIVE ENZYME PREPARATION [Concomitant]
     Indication: DYSPEPSIA
     Route: 049
     Dates: start: 20030922, end: 20031005
  11. ANTIBIOTICS-RESISTANT LACTIC ACID BACTERIAE [Concomitant]
     Indication: CONSTIPATION
     Route: 049
     Dates: start: 20030922, end: 20031005
  12. MIXED AMINO-ACID, CARBOHYDRATE, ELECTROLYTE, VITAMIN [Concomitant]
     Indication: NUTRITIONAL SUPPORT
     Route: 041
     Dates: start: 20030922, end: 20031007
  13. FUROSEMIDE [Concomitant]
     Indication: OEDEMA
     Route: 049
     Dates: start: 20030922, end: 20031005
  14. DICLOFENAC SODIUM [Concomitant]
     Indication: CANCER PAIN
     Dates: start: 20030926, end: 20030927

REACTIONS (3)
  - ASPARTATE AMINOTRANSFERASE INCREASED [None]
  - CONSTIPATION [None]
  - MALIGNANT NEOPLASM PROGRESSION [None]
